FAERS Safety Report 14700981 (Version 4)
Quarter: 2019Q2

REPORT INFORMATION
  Report Type: Spontaneous
  Country: US (occurrence: US)
  Receive Date: 20180330
  Receipt Date: 20190614
  Transmission Date: 20190711
  Serious: Yes (Death, Other)
  Sender: FDA-Public Use
  Company Number: US-ASTRAZENECA-2018SE37674

PATIENT
  Age: 18019 Day
  Sex: Male
  Weight: 145.2 kg

DRUGS (40)
  1. NEXIUM 24HR [Suspect]
     Active Substance: ESOMEPRAZOLE MAGNESIUM
     Indication: GASTROOESOPHAGEAL REFLUX DISEASE
     Route: 048
     Dates: start: 2014, end: 2016
  2. PENICILLIN [Concomitant]
     Active Substance: PENICILLIN
     Indication: INFECTION
  3. FLUOXETINE [Concomitant]
     Active Substance: FLUOXETINE HYDROCHLORIDE
     Indication: OEDEMA
  4. BISOPROLOL [Concomitant]
     Active Substance: BISOPROLOL
     Indication: INFECTION
  5. CARTIA [Concomitant]
     Indication: INFECTION
  6. COLACE [Concomitant]
     Active Substance: DOCUSATE SODIUM
     Indication: INFECTION
  7. PREVACID 24 HR [Suspect]
     Active Substance: LANSOPRAZOLE
     Indication: GASTROOESOPHAGEAL REFLUX DISEASE
     Route: 065
     Dates: start: 2009, end: 2011
  8. FUROSEMIDE. [Concomitant]
     Active Substance: FUROSEMIDE
     Indication: OEDEMA
  9. REQUIP [Concomitant]
     Active Substance: ROPINIROLE HYDROCHLORIDE
     Indication: INFECTION
  10. PREGABALIN. [Concomitant]
     Active Substance: PREGABALIN
  11. GLYBURIDE. [Concomitant]
     Active Substance: GLYBURIDE
  12. FERROUS SULFATE. [Concomitant]
     Active Substance: FERROUS SULFATE
  13. AZITHROMYCIN ANHYDROUS. [Concomitant]
     Active Substance: AZITHROMYCIN ANHYDROUS
     Indication: INFECTION
  14. SULFAMETHOXAZOLE [Concomitant]
     Active Substance: SULFAMETHOXAZOLE
     Indication: INFECTION
  15. TORSEMIDE. [Concomitant]
     Active Substance: TORSEMIDE
     Indication: OEDEMA
  16. DILTIAZEM. [Concomitant]
     Active Substance: DILTIAZEM
  17. FUROSEMIDE. [Concomitant]
     Active Substance: FUROSEMIDE
  18. METHADONE [Concomitant]
     Active Substance: METHADONE HYDROCHLORIDE
  19. NEXIUM [Suspect]
     Active Substance: ESOMEPRAZOLE MAGNESIUM
     Indication: GASTROOESOPHAGEAL REFLUX DISEASE
     Route: 048
     Dates: start: 20080808, end: 201606
  20. DEMADEX [Concomitant]
     Active Substance: TORSEMIDE
     Indication: INFECTION
  21. METFORMIN [Concomitant]
     Active Substance: METFORMIN HYDROCHLORIDE
  22. PREGABALIN. [Concomitant]
     Active Substance: PREGABALIN
  23. FENOFIBRATE. [Concomitant]
     Active Substance: FENOFIBRATE
  24. ONDANSETRON [Concomitant]
     Active Substance: ONDANSETRON
  25. HEPARIN [Concomitant]
     Active Substance: HEPARIN SODIUM
  26. ALPRAZOLAM. [Concomitant]
     Active Substance: ALPRAZOLAM
  27. BISOPROLOL FUMARATE. [Concomitant]
     Active Substance: BISOPROLOL FUMARATE
  28. CIPROFLOXACIN. [Concomitant]
     Active Substance: CIPROFLOXACIN
     Indication: INFECTION
  29. DIOVAN [Concomitant]
     Active Substance: VALSARTAN
     Indication: BLOOD PRESSURE ABNORMAL
  30. JANUVIA [Concomitant]
     Active Substance: SITAGLIPTIN PHOSPHATE
     Indication: INFECTION
  31. FUROSEMIDE. [Concomitant]
     Active Substance: FUROSEMIDE
  32. INSULIN [Concomitant]
     Active Substance: INSULIN NOS
  33. SODIUM CHLORIDE. [Concomitant]
     Active Substance: SODIUM CHLORIDE
  34. LYRICA [Concomitant]
     Active Substance: PREGABALIN
     Indication: INFECTION
  35. DILTIAZEM. [Concomitant]
     Active Substance: DILTIAZEM
  36. PROTONIX [Suspect]
     Active Substance: PANTOPRAZOLE SODIUM
     Indication: GASTROOESOPHAGEAL REFLUX DISEASE
     Route: 065
  37. ZOLOFT [Concomitant]
     Active Substance: SERTRALINE HYDROCHLORIDE
     Indication: INFECTION
  38. CIPRO [Concomitant]
     Active Substance: CIPROFLOXACIN HYDROCHLORIDE
     Indication: INFECTION
  39. INSULIN ASPART [Concomitant]
     Active Substance: INSULIN ASPART
  40. GLUCAGON. [Concomitant]
     Active Substance: GLUCAGON

REACTIONS (5)
  - End stage renal disease [Fatal]
  - Nephrogenic anaemia [Unknown]
  - Chronic kidney disease [Not Recovered/Not Resolved]
  - Acute kidney injury [Not Recovered/Not Resolved]
  - Renal failure [Unknown]

NARRATIVE: CASE EVENT DATE: 20140211
